FAERS Safety Report 7224528-4 (Version None)
Quarter: 2011Q1

REPORT INFORMATION
  Report Type: 
  Country: None (occurrence: None)
  Receive Date: 20110113
  Receipt Date: 20110110
  Transmission Date: 20110831
  Serious: Yes (Other)
  Sender: FDA-Public Use
  Company Number: US-PFIZER INC-2009185090

PATIENT
  Sex: Female
  Weight: 87 kg

DRUGS (8)
  1. PROVERA [Suspect]
     Indication: HORMONE REPLACEMENT THERAPY
     Dosage: 10 MG, UNK
     Route: 048
     Dates: start: 19870601, end: 19930101
  2. PROVERA [Suspect]
     Indication: MENOPAUSAL SYMPTOMS
  3. PREMPRO [Suspect]
     Indication: MENOPAUSAL SYMPTOMS
  4. PREMARIN [Suspect]
     Indication: MENOPAUSAL SYMPTOMS
  5. PREMARIN [Suspect]
     Indication: HORMONE REPLACEMENT THERAPY
     Dosage: 0.625 MG, UNK
     Route: 048
     Dates: start: 20000101, end: 20040101
  6. PREMPRO [Suspect]
     Indication: HORMONE REPLACEMENT THERAPY
     Dosage: UNK
     Route: 048
     Dates: start: 19930101, end: 19990101
  7. CYCRIN [Suspect]
     Indication: HORMONE REPLACEMENT THERAPY
     Dosage: UNK
     Dates: start: 19860101
  8. CYCRIN [Suspect]
     Indication: MENOPAUSAL SYMPTOMS

REACTIONS (1)
  - BREAST CANCER FEMALE [None]
